FAERS Safety Report 12546733 (Version 1)
Quarter: 2016Q3

REPORT INFORMATION
  Report Type: Report from Study
  Country: US (occurrence: US)
  Receive Date: 20160711
  Receipt Date: 20160711
  Transmission Date: 20161109
  Serious: Yes (Other)
  Sender: FDA-Public Use
  Company Number: US-JNJFOC-20160414610

PATIENT
  Age: 52 Year
  Sex: Female

DRUGS (3)
  1. IMBRUVICA [Suspect]
     Active Substance: IBRUTINIB
     Indication: CHRONIC LYMPHOCYTIC LEUKAEMIA
     Route: 048
     Dates: start: 2016
  2. FLUCONAZOLE. [Interacting]
     Active Substance: FLUCONAZOLE
     Indication: FUNGAL INFECTION
     Dates: start: 2016, end: 2016
  3. IMBRUVICA [Suspect]
     Active Substance: IBRUTINIB
     Indication: CHRONIC LYMPHOCYTIC LEUKAEMIA
     Route: 048
     Dates: start: 20160330

REACTIONS (29)
  - Fall [Unknown]
  - Nausea [Recovered/Resolved]
  - Pruritus [Unknown]
  - Anxiety [Unknown]
  - Arthralgia [Unknown]
  - Dysuria [Unknown]
  - Chromaturia [Unknown]
  - Aphasia [Unknown]
  - Dysphonia [Unknown]
  - Amnesia [Unknown]
  - Exposure via skin contact [Unknown]
  - Gait disturbance [Unknown]
  - Fatigue [Unknown]
  - Myalgia [Unknown]
  - Pyrexia [Unknown]
  - Chills [Unknown]
  - Abdominal discomfort [Unknown]
  - Feeling abnormal [Not Recovered/Not Resolved]
  - Urine abnormality [Unknown]
  - Faeces discoloured [Recovered/Resolved]
  - Memory impairment [Unknown]
  - Diarrhoea [Unknown]
  - Oropharyngeal pain [Unknown]
  - Fungal infection [Unknown]
  - Wheezing [Unknown]
  - Oral candidiasis [Unknown]
  - Cough [Unknown]
  - Contusion [Unknown]
  - Drug interaction [Unknown]

NARRATIVE: CASE EVENT DATE: 2016
